FAERS Safety Report 21096109 (Version 1)
Quarter: 2022Q3

REPORT INFORMATION
  Report Type: Report from Study
  Country: JP (occurrence: None)
  Receive Date: 20220718
  Receipt Date: 20220718
  Transmission Date: 20221027
  Serious: Yes (Life-Threatening, Hospitalization)
  Sender: FDA-Public Use
  Company Number: 2022A244556

PATIENT
  Age: 73 Year
  Sex: Male

DRUGS (5)
  1. DATOPOTAMAB DERUXTECAN [Suspect]
     Active Substance: DATOPOTAMAB DERUXTECAN
     Indication: Non-small cell lung cancer metastatic
     Route: 041
     Dates: start: 20220623, end: 20220623
  2. DURVALUMAB [Suspect]
     Active Substance: DURVALUMAB
     Indication: Non-small cell lung cancer metastatic
     Route: 041
     Dates: start: 20220623, end: 20220623
  3. FILGRASTIM [Concomitant]
     Active Substance: FILGRASTIM
     Dosage: 75 UG, QD
     Route: 042
     Dates: start: 20220702, end: 20220703
  4. LOPERAMIDE HYDROCHLORIDE [Concomitant]
     Active Substance: LOPERAMIDE HYDROCHLORIDE
     Indication: Diarrhoea
     Dosage: 1 MG, AS NEEDED
     Route: 048
     Dates: start: 20220701, end: 20220703
  5. AMBROXOL HYDROCHLORIDE [Concomitant]
     Active Substance: AMBROXOL HYDROCHLORIDE
     Dosage: 45 MG
     Route: 048

REACTIONS (4)
  - Gamma-glutamyltransferase increased [Recovered/Resolved]
  - Sepsis [Not Recovered/Not Resolved]
  - Neutropenia [Recovered/Resolved]
  - Cytokine release syndrome [Not Recovered/Not Resolved]

NARRATIVE: CASE EVENT DATE: 20220630
